FAERS Safety Report 15655721 (Version 9)
Quarter: 2020Q4

REPORT INFORMATION
  Report Type: Other
  Country: DE (occurrence: DE)
  Receive Date: 20181126
  Receipt Date: 20201218
  Transmission Date: 20210113
  Serious: Yes (Hospitalization, Other)
  Sender: FDA-Public Use
  Company Number: DE-ROCHE-2218337

PATIENT
  Age: 48 Year
  Sex: Male

DRUGS (3)
  1. OCREVUS [Suspect]
     Active Substance: OCRELIZUMAB
     Indication: PRIMARY PROGRESSIVE MULTIPLE SCLEROSIS
     Route: 042
     Dates: start: 201805
  2. PREGABALIN. [Concomitant]
     Active Substance: PREGABALIN
  3. OCREVUS [Suspect]
     Active Substance: OCRELIZUMAB
     Route: 042
     Dates: end: 20190917

REACTIONS (6)
  - Fatigue [Recovered/Resolved]
  - Cardiovascular disorder [Recovered/Resolved]
  - Blood pressure decreased [Recovered/Resolved]
  - Influenza [Recovering/Resolving]
  - Pneumonia [Recovered/Resolved]
  - Gait disturbance [Not Recovered/Not Resolved]

NARRATIVE: CASE EVENT DATE: 201808
